FAERS Safety Report 9500307 (Version 1)
Quarter: 2013Q3

REPORT INFORMATION
  Report Type: Spontaneous
  Country: US (occurrence: None)
  Receive Date: 20130903
  Receipt Date: 20130903
  Transmission Date: 20140515
  Serious: No
  Sender: FDA-Public Use
  Company Number: 2013-00120

PATIENT
  Age: 35 Year
  Sex: Male
  Weight: 83.92 kg

DRUGS (1)
  1. ZICAM COLD REMEDY ORAL MIST [Suspect]
     Indication: NASOPHARYNGITIS
     Dosage: ORAL SPRAY THREE TIMES DAILY
     Route: 048
     Dates: start: 20130824, end: 20130827

REACTIONS (3)
  - Ageusia [None]
  - Nasal congestion [None]
  - Condition aggravated [None]
